FAERS Safety Report 20583925 (Version 1)
Quarter: 2022Q1

REPORT INFORMATION
  Report Type: Spontaneous
  Country: US (occurrence: US)
  Receive Date: 20220311
  Receipt Date: 20220311
  Transmission Date: 20220424
  Serious: Yes (Disabling, Other)
  Sender: FDA-Public Use
  Company Number: US-SA-SAC20220310001599

PATIENT
  Age: 93 Year
  Sex: Male

DRUGS (2)
  1. DUPIXENT [Suspect]
     Active Substance: DUPILUMAB
     Indication: Dermatitis atopic
     Dosage: 1X (ONCE)
     Route: 058
     Dates: start: 20220221, end: 20220221
  2. DUPIXENT [Suspect]
     Active Substance: DUPILUMAB
     Dosage: 300 MG, QOW
     Route: 058

REACTIONS (4)
  - Blindness unilateral [Not Recovered/Not Resolved]
  - Macular degeneration [Not Recovered/Not Resolved]
  - Skin mass [Not Recovered/Not Resolved]
  - Arthralgia [Not Recovered/Not Resolved]
